FAERS Safety Report 9246818 (Version 1)
Quarter: 2013Q2

REPORT INFORMATION
  Report Type: Spontaneous
  Country: US (occurrence: US)
  Receive Date: 20130422
  Receipt Date: 20130422
  Transmission Date: 20140414
  Serious: Yes (Death)
  Sender: FDA-Public Use
  Company Number: US-ROCHE-1216280

PATIENT
  Sex: Female

DRUGS (4)
  1. HERCEPTIN [Suspect]
     Indication: BREAST CANCER METASTATIC
     Route: 065
  2. FEMARA [Suspect]
     Indication: BREAST CANCER METASTATIC
     Route: 065
  3. TYKERB [Suspect]
     Indication: BREAST CANCER METASTATIC
     Route: 065
  4. AVASTIN [Suspect]
     Indication: BREAST CANCER METASTATIC
     Route: 065

REACTIONS (2)
  - Metastases to central nervous system [Unknown]
  - Death [Fatal]
